FAERS Safety Report 15368304 (Version 2)
Quarter: 2018Q4

REPORT INFORMATION
  Report Type: Spontaneous
  Country: US (occurrence: US)
  Receive Date: 20180910
  Receipt Date: 20181004
  Transmission Date: 20190204
  Serious: Yes (Death, Hospitalization)
  Sender: FDA-Public Use
  Company Number: US-ACTELION-A-NJ2018-178419

PATIENT
  Age: 16 Year
  Sex: Female

DRUGS (15)
  1. ZOLOFT [Concomitant]
     Active Substance: SERTRALINE HYDROCHLORIDE
     Dosage: 1 TABLET VIA G-TUBE, QD
     Route: 049
     Dates: start: 20170801, end: 20180915
  2. SCOPOLAMINE [Concomitant]
     Active Substance: SCOPOLAMINE
     Dosage: 1 PATCH TOPICALLY, EVERY 3 DAYS
     Route: 062
     Dates: start: 20170801, end: 20180915
  3. FEXOFENADINE [Concomitant]
     Active Substance: FEXOFENADINE\FEXOFENADINE HYDROCHLORIDE
     Dosage: 10 ML, BID
     Route: 049
     Dates: start: 20160816, end: 20180915
  4. METRONIDAZOLE. [Concomitant]
     Active Substance: METRONIDAZOLE
     Dosage: 1 APPLICATION, BID
     Route: 061
     Dates: start: 20160816, end: 20180915
  5. KEPPRA [Concomitant]
     Active Substance: LEVETIRACETAM
     Dosage: 1 TAB VIA G-TUBE, TID
     Route: 049
     Dates: start: 20160816, end: 20180915
  6. ZETIA [Concomitant]
     Active Substance: EZETIMIBE
     Dosage: 5 MG VIA G-TUBE, QD
     Route: 049
     Dates: start: 20140917, end: 20180915
  7. ROBINUL [Concomitant]
     Active Substance: GLYCOPYRROLATE
     Dosage: 1 TABLET VIA G-TUBE, PRN
     Route: 049
     Dates: start: 20170801, end: 20180915
  8. PEPCID [Concomitant]
     Active Substance: FAMOTIDINE
     Dosage: 1 TABLET VIA G-TUBE BID
     Route: 049
     Dates: start: 20140917, end: 20180915
  9. FLORASTOR [Concomitant]
     Active Substance: SACCHAROMYCES CEREVISIAE
     Dosage: 1 CAPSULE VIA G-TUBE, BID
     Route: 050
     Dates: start: 20170801, end: 20180915
  10. LAMICTAL [Concomitant]
     Active Substance: LAMOTRIGINE
     Dosage: 7 TABLETS VIA G-TUBE, QD
     Route: 049
     Dates: start: 20160816, end: 20180915
  11. ALDACTONE [Concomitant]
     Active Substance: SPIRONOLACTONE
     Dosage: 12.5 MG VIA G-TUBE, BID
     Route: 049
     Dates: start: 20140917, end: 20180915
  12. TRILEPTAL [Concomitant]
     Active Substance: OXCARBAZEPINE
     Dosage: 1 TABLET VIA G-TUBE, QD
     Route: 049
     Dates: start: 20140120, end: 20180915
  13. DOXYCYCLINE. [Concomitant]
     Active Substance: DOXYCYCLINE
     Dosage: 1 CAPSULE VIA G-TUBE QD
     Route: 049
     Dates: start: 20170801, end: 20180915
  14. ZAVESCA [Suspect]
     Active Substance: MIGLUSTAT
     Indication: LIPIDOSIS
     Dosage: 200 MG IN AM AND 100 MG IN PM
     Route: 048
     Dates: start: 20100510
  15. SINGULAIR [Concomitant]
     Active Substance: MONTELUKAST SODIUM
     Dosage: 2 TABLET, QD
     Route: 048
     Dates: start: 20170801, end: 20180915

REACTIONS (3)
  - Product used for unknown indication [Unknown]
  - Death [Fatal]
  - Cholecystectomy [Unknown]

NARRATIVE: CASE EVENT DATE: 20180915
